FAERS Safety Report 5247415-X (Version None)
Quarter: 2007Q1

REPORT INFORMATION
  Report Type: 
  Country: None (occurrence: None)
  Receive Date: 20070220
  Receipt Date: 20070208
  Transmission Date: 20070707
  Serious: Yes (Other)
  Sender: FDA-Public Use
  Company Number: 236343

PATIENT
  Sex: 0

DRUGS (1)
  1. XOLAIR [Suspect]

REACTIONS (3)
  - CARDIOMYOPATHY [None]
  - NEPHROPATHY [None]
  - VIRAL INFECTION [None]
